FAERS Safety Report 20784570 (Version 3)
Quarter: 2022Q3

REPORT INFORMATION
  Report Type: Report from Study
  Country: US (occurrence: US)
  Receive Date: 20220504
  Receipt Date: 20220623
  Transmission Date: 20221027
  Serious: No
  Sender: FDA-Public Use
  Company Number: US-NOVARTISTESTPH-NVSC2022US101960

PATIENT
  Sex: Female

DRUGS (1)
  1. ENTRESTO [Suspect]
     Active Substance: SACUBITRIL\VALSARTAN
     Indication: Product used for unknown indication
     Dosage: 1 DOSAGE FORM, BID (49/51 MG)
     Route: 048
     Dates: start: 2021

REACTIONS (8)
  - Bronchitis [Not Recovered/Not Resolved]
  - COVID-19 [Recovering/Resolving]
  - Fatigue [Unknown]
  - Cough [Unknown]
  - Pyrexia [Unknown]
  - Rhinorrhoea [Unknown]
  - Arthropathy [Unknown]
  - Concomitant disease aggravated [Unknown]
